FAERS Safety Report 9061936 (Version 1)
Quarter: 2013Q1

REPORT INFORMATION
  Report Type: Spontaneous
  Country: PL (occurrence: PL)
  Receive Date: 20130128
  Receipt Date: 20130128
  Transmission Date: 20140127
  Serious: Yes (Hospitalization, Other)
  Sender: FDA-Public Use
  Company Number: PL-JNJFOC-20130112709

PATIENT
  Age: 53 Year
  Sex: Male

DRUGS (5)
  1. ZYRTEC [Suspect]
     Route: 048
  2. ZYRTEC [Suspect]
     Indication: PRODUCT USED FOR UNKNOWN INDICATION
     Route: 048
  3. PENTOXIFYLLINE [Concomitant]
     Route: 048
  4. METHYLPREDNISOLONE [Concomitant]
     Route: 048
  5. CIPROFLOXACIN [Concomitant]
     Route: 048

REACTIONS (2)
  - Atrial fibrillation [Recovered/Resolved]
  - Oedema [Unknown]
